FAERS Safety Report 9645953 (Version 1)
Quarter: 2013Q4

REPORT INFORMATION
  Report Type: Spontaneous
  Country: US (occurrence: None)
  Receive Date: 20131024
  Receipt Date: 20131024
  Transmission Date: 20140711
  Serious: Yes (Disabling)
  Sender: FDA-Public Use
  Company Number: None

PATIENT
  Age: 64 Year
  Sex: Female
  Weight: 113.85 kg

DRUGS (6)
  1. AMPYRA [Suspect]
     Indication: MULTIPLE SCLEROSIS
     Route: 048
     Dates: start: 20130505, end: 20130824
  2. CELEBREX [Concomitant]
  3. PAROXETINE [Concomitant]
  4. CILOSTAZOL [Concomitant]
  5. ARICEPT [Concomitant]
  6. ALEVE [Concomitant]

REACTIONS (2)
  - Diplopia [None]
  - Fall [None]
